FAERS Safety Report 7365854-8 (Version None)
Quarter: 2011Q1

REPORT INFORMATION
  Report Type: 
  Country: None (occurrence: None)
  Receive Date: 20110322
  Receipt Date: 20110315
  Transmission Date: 20110831
  Serious: Yes (Death)
  Sender: FDA-Public Use
  Company Number: US-CELGENEUS-163-21880-11031870

PATIENT
  Sex: Female

DRUGS (13)
  1. MECLIZINE [Concomitant]
     Route: 065
  2. MEPERIDINE HCL [Concomitant]
     Route: 065
  3. LEVOTHYROXINE SODIUM [Concomitant]
     Route: 065
  4. NEUPOGEN [Concomitant]
     Route: 065
  5. ONDANSETRON [Concomitant]
     Route: 065
  6. REVLIMID [Suspect]
     Dosage: 10 MILLIGRAM
     Route: 048
     Dates: start: 20110101, end: 20110101
  7. PRILOSEC [Concomitant]
     Route: 065
  8. REVLIMID [Suspect]
     Indication: LYMPHOMA
     Dosage: 25 MILLIGRAM
     Route: 048
     Dates: start: 20101201
  9. PROZAC [Concomitant]
     Route: 065
  10. DEXAMETHASONE [Concomitant]
     Route: 065
  11. LORAZEPAM [Concomitant]
     Route: 065
  12. OXYCODONE [Concomitant]
     Route: 065
  13. PROMETHAZINE [Concomitant]
     Route: 065

REACTIONS (1)
  - DEATH [None]
